FAERS Safety Report 6020217-2 (Version None)
Quarter: 2008Q4

REPORT INFORMATION
  Report Type: 
  Country: None (occurrence: None)
  Receive Date: 20081223
  Receipt Date: 20081223
  Transmission Date: 20090506
  Serious: Yes (Other)
  Sender: FDA-Public Use
  Company Number: None

PATIENT
  Age: 18 Year
  Sex: Male
  Weight: 67.1324 kg

DRUGS (2)
  1. GEODON [Suspect]
     Indication: BIPOLAR DISORDER
     Dosage: 80MG ONCE/DAY PO
     Route: 048
     Dates: start: 20080501, end: 20081222
  2. LAMICTAL [Suspect]
     Indication: BIPOLAR DISORDER
     Dosage: 400MG ONCE/DAY PO
     Route: 048
     Dates: start: 20080501, end: 20081222

REACTIONS (1)
  - WEIGHT DECREASED [None]
